FAERS Safety Report 4506895-5 (Version None)
Quarter: 2004Q4

REPORT INFORMATION
  Report Type: 
  Country: None (occurrence: None)
  Receive Date: 20041117
  Receipt Date: 20041108
  Transmission Date: 20050328
  Serious: Yes (Hospitalization)
  Sender: FDA-Public Use
  Company Number: 2004089659

PATIENT
  Age: 37 Year
  Sex: Female

DRUGS (9)
  1. ZITHROMAX [Suspect]
     Indication: BRONCHITIS
     Dosage: 500 MG, ORAL
     Route: 048
     Dates: start: 20040929
  2. TEPRENONE (TEPRENONE) [Concomitant]
  3. DEXTROMETHORPHAN HYDROBROMIDE (DEXTROMETHORPHAN HYDROBROMIDE) [Concomitant]
  4. FUDOSTEINE (FUDOSTEINE) [Concomitant]
  5. THEOPHYLLINE [Concomitant]
  6. MONTELUKAST (MONTELUKAST) [Concomitant]
  7. SALMETEROL XINAFOATE (SALMETEROL XINAFOATE) [Concomitant]
  8. FLUTICASONE PROPIONATE [Concomitant]
  9. SUPLASTAST TOSILATE (SUPLASTAT TOSILATE) [Concomitant]

REACTIONS (1)
  - ENTEROCOLITIS HAEMORRHAGIC [None]
